FAERS Safety Report 13789078 (Version 1)
Quarter: 2017Q3

REPORT INFORMATION
  Report Type: Report from Study
  Country: DE (occurrence: DE)
  Receive Date: 20170725
  Receipt Date: 20170725
  Transmission Date: 20171127
  Serious: Yes (Hospitalization, Other)
  Sender: FDA-Public Use
  Company Number: DE-BIOGEN-2017BI00435268

PATIENT
  Age: 29 Year
  Sex: Female

DRUGS (1)
  1. PLEGRIDY [Suspect]
     Active Substance: PEGINTERFERON BETA-1A
     Indication: MULTIPLE SCLEROSIS
     Route: 058
     Dates: start: 20150104

REACTIONS (4)
  - Multiple sclerosis relapse [Recovered/Resolved]
  - Ageusia [Unknown]
  - Anosmia [Unknown]
  - Uterine cancer [Not Recovered/Not Resolved]

NARRATIVE: CASE EVENT DATE: 2017
